FAERS Safety Report 6092187-2 (Version None)
Quarter: 2009Q1

REPORT INFORMATION
  Report Type: 
  Country: None (occurrence: None)
  Receive Date: 20090219
  Receipt Date: 20081212
  Transmission Date: 20090719
  Serious: No
  Sender: FDA-Public Use
  Company Number: WAES 0810USA00458

PATIENT
  Age: 65 Year
  Sex: Male
  Weight: 118.3888 kg

DRUGS (6)
  1. JANUVIA [Suspect]
     Indication: TYPE 2 DIABETES MELLITUS
     Dosage: 25 MG/DAILY/PO ; 25 MG/DAILY/PO
     Route: 048
     Dates: start: 20070227, end: 20070307
  2. JANUVIA [Suspect]
     Indication: TYPE 2 DIABETES MELLITUS
     Dosage: 25 MG/DAILY/PO ; 25 MG/DAILY/PO
     Route: 048
     Dates: start: 20070401, end: 20070401
  3. GLUCOVANCE [Concomitant]
  4. ZOCOR [Concomitant]
  5. ASPIRIN [Concomitant]
  6. INSULIN GLARGINE [Concomitant]

REACTIONS (5)
  - CHILLS [None]
  - COUGH [None]
  - DYSPNOEA [None]
  - FATIGUE [None]
  - PRODUCTIVE COUGH [None]
